FAERS Safety Report 20890265 (Version 1)
Quarter: 2022Q2

REPORT INFORMATION
  Report Type: Other
  Country: DE (occurrence: None)
  Receive Date: 20220530
  Receipt Date: 20220530
  Transmission Date: 20220720
  Serious: Yes (Hospitalization)
  Sender: FDA-Public Use
  Company Number: DE-ROCHE-2490700

PATIENT
  Age: 34 Year
  Sex: Female

DRUGS (12)
  1. OCREVUS [Suspect]
     Active Substance: OCRELIZUMAB
     Indication: Relapsing-remitting multiple sclerosis
     Dosage: ON 05/SEP/2019, SHE RECEIVED SECOND SPLIT DOSE OF OCRELIZUMAB INFUSION.?THEN 600MG
     Route: 042
     Dates: start: 20190821
  2. OCREVUS [Suspect]
     Active Substance: OCRELIZUMAB
     Dosage: SUBSEQUENT DOSE ON 15/SEP/2020 THEN 600MG
     Route: 042
     Dates: start: 20200303
  3. OCREVUS [Suspect]
     Active Substance: OCRELIZUMAB
     Route: 042
     Dates: start: 20200915
  4. OCREVUS [Suspect]
     Active Substance: OCRELIZUMAB
     Route: 042
     Dates: start: 20210302
  5. OCREVUS [Suspect]
     Active Substance: OCRELIZUMAB
     Route: 042
     Dates: start: 20211011
  6. CHOLECALCIFEROL [Concomitant]
     Active Substance: CHOLECALCIFEROL
  7. LEVOTHYROXINE SODIUM [Concomitant]
     Active Substance: LEVOTHYROXINE SODIUM
  8. MESTINON [Concomitant]
     Active Substance: PYRIDOSTIGMINE BROMIDE
  9. SODIUM PROPIONATE [Concomitant]
     Active Substance: SODIUM PROPIONATE
  10. BIOTIN [Concomitant]
     Active Substance: BIOTIN
  11. COVID-19 VACCINE [Concomitant]
     Indication: COVID-19 prophylaxis
     Dates: start: 202108
  12. COMIRNATY [Concomitant]
     Active Substance: TOZINAMERAN
     Dates: start: 202108

REACTIONS (20)
  - Infusion related reaction [Recovered/Resolved]
  - Pruritus [Recovered/Resolved]
  - Eye pruritus [Recovered/Resolved]
  - Ocular hyperaemia [Recovered/Resolved]
  - Rash [Recovered/Resolved]
  - Throat irritation [Recovered/Resolved]
  - Fatigue [Recovered/Resolved]
  - Burning sensation [Recovered/Resolved]
  - Back pain [Recovered/Resolved]
  - Arthralgia [Recovered/Resolved]
  - Cough [Not Recovered/Not Resolved]
  - Dyspnoea [Recovered/Resolved]
  - Palpitations [Recovered/Resolved]
  - Erythema of eyelid [Recovered/Resolved]
  - Swelling of eyelid [Recovered/Resolved]
  - B-lymphocyte count decreased [Recovered/Resolved]
  - Fatigue [Recovered/Resolved]
  - Burning sensation [Recovered/Resolved]
  - Fatigue [Not Recovered/Not Resolved]
  - COVID-19 [Recovered/Resolved]

NARRATIVE: CASE EVENT DATE: 20190821
